FAERS Safety Report 15588934 (Version 1)
Quarter: 2018Q4

REPORT INFORMATION
  Report Type: Spontaneous
  Country: IT (occurrence: IT)
  Receive Date: 20181106
  Receipt Date: 20181106
  Transmission Date: 20190205
  Serious: Yes (Other)
  Sender: FDA-Public Use
  Company Number: IT-IPSEN BIOPHARMACEUTICALS, INC.-2018-16594

PATIENT
  Age: 32 Year
  Sex: Male

DRUGS (1)
  1. DYSPORT [Suspect]
     Active Substance: ABOBOTULINUMTOXINA
     Indication: MUSCLE SPASTICITY
     Dosage: 1500 UNITS?DOSE DIVIDED BETWEEN QUADRICEPS AND ADDUCTORS MUSCLES, BILATERALLY

REACTIONS (1)
  - Neuromuscular toxicity [Recovered/Resolved]
